FAERS Safety Report 21792592 (Version 1)
Quarter: 2022Q4

REPORT INFORMATION
  Report Type: Spontaneous
  Country: FR (occurrence: FR)
  Receive Date: 20221229
  Receipt Date: 20221229
  Transmission Date: 20230113
  Serious: Yes (Death, Other)
  Sender: FDA-Public Use
  Company Number: None

PATIENT
  Age: 72 Year
  Sex: Male
  Weight: 95 kg

DRUGS (22)
  1. IRBESARTAN [Suspect]
     Active Substance: IRBESARTAN
     Indication: Hypertension
     Dosage: 150MG/J
     Route: 048
     Dates: end: 20220925
  2. POTASSIUM CHLORIDE [Suspect]
     Active Substance: POTASSIUM CHLORIDE
     Indication: Product used for unknown indication
     Route: 048
     Dates: end: 202209
  3. DIMETHICONE [Concomitant]
     Active Substance: DIMETHICONE
     Route: 048
  4. LACTULOSE [Concomitant]
     Active Substance: LACTULOSE
     Dosage: UNK
     Route: 048
  5. BISOPROLOL [Concomitant]
     Active Substance: BISOPROLOL
     Dosage: 1.25 MG
  6. PHLOROGLUCINOL [Concomitant]
     Active Substance: PHLOROGLUCINOL
     Dosage: UNK
     Route: 048
  7. FOLIC ACID [Concomitant]
     Active Substance: FOLIC ACID
     Dosage: 5 MG
     Route: 048
  8. AMLODIPINE [Concomitant]
     Active Substance: AMLODIPINE BESYLATE
     Dosage: 10 MG
  9. LANSOPRAZOLE [Concomitant]
     Active Substance: LANSOPRAZOLE
  10. INSULIN GLARGINE [Concomitant]
     Active Substance: INSULIN GLARGINE
     Dosage: 10 IU
  11. ASCORBIC ACID [Concomitant]
     Active Substance: ASCORBIC ACID
     Dosage: UNK
     Route: 048
  12. DAPAGLIFLOZIN [Concomitant]
     Active Substance: DAPAGLIFLOZIN
     Route: 048
     Dates: start: 20220909
  13. FER [FOLIC ACID;IRON] [Concomitant]
     Route: 048
  14. SILODOSIN [Concomitant]
     Active Substance: SILODOSIN
     Dosage: 4 MG
  15. ENOXAPARIN SODIUM [Concomitant]
     Active Substance: ENOXAPARIN SODIUM
     Dosage: 4000 IU
  16. FOLIC ACID [Concomitant]
     Active Substance: FOLIC ACID
     Dosage: 5 MG
     Route: 048
  17. CETIRIZINE [Concomitant]
     Active Substance: CETIRIZINE HYDROCHLORIDE
     Dosage: 10 MG
  18. TAMSULOSIN [Concomitant]
     Active Substance: TAMSULOSIN
     Dosage: 0.4 MG
  19. FUROSEMIDE [Concomitant]
     Active Substance: FUROSEMIDE
     Dosage: 40 MG, BID
  20. INSULINE LISPRO [Concomitant]
     Dosage: 8 IU, TID
  21. PREDNISONE [Concomitant]
     Active Substance: PREDNISONE
     Dosage: 5 MG
  22. URAPIDIL [Concomitant]
     Active Substance: URAPIDIL
     Dosage: 60 MG, BID
     Route: 048

REACTIONS (1)
  - Hyperkalaemia [Fatal]

NARRATIVE: CASE EVENT DATE: 20220922
